FAERS Safety Report 4548054-6 (Version None)
Quarter: 2005Q1

REPORT INFORMATION
  Report Type: 
  Country: None (occurrence: None)
  Receive Date: 20050104
  Receipt Date: 20050104
  Transmission Date: 20050727
  Serious: Yes (Life-Threatening, Disabling, Other)
  Sender: FDA-Public Use
  Company Number: None

PATIENT
  Age: 52 Year
  Sex: Male
  Weight: 95.2554 kg

DRUGS (5)
  1. EFFEXOR XR [Suspect]
     Indication: CHRONIC FATIGUE SYNDROME
     Dosage: 300 MG.  DAILY  ORAL
     Route: 048
     Dates: start: 20011201, end: 20020601
  2. EFFEXOR [Suspect]
     Indication: CHRONIC FATIGUE SYNDROME
     Dosage: 75 MG.    DAILY   ORAL
     Route: 048
     Dates: start: 20011201, end: 20020601
  3. LEXAPRO [Concomitant]
  4. HYTRIN [Concomitant]
  5. ASPIRIN [Concomitant]

REACTIONS (6)
  - BEDRIDDEN [None]
  - FAECAL INCONTINENCE [None]
  - OSTEOARTHRITIS [None]
  - PAIN [None]
  - URINARY INCONTINENCE [None]
  - WEIGHT DECREASED [None]
